FAERS Safety Report 22065802 (Version 2)
Quarter: 2023Q2

REPORT INFORMATION
  Report Type: Spontaneous
  Country: US (occurrence: US)
  Receive Date: 20230306
  Receipt Date: 20230411
  Transmission Date: 20230721
  Serious: Yes (Death, Other)
  Sender: FDA-Public Use
  Company Number: US-BAYER-2023A026955

PATIENT
  Age: 75 Year
  Sex: Male
  Weight: 81.6 kg

DRUGS (6)
  1. ASPIRIN [Suspect]
     Active Substance: ASPIRIN
  2. APIXABAN [Suspect]
     Active Substance: APIXABAN
     Indication: Atrial fibrillation
     Dosage: 5 MG, BID
     Route: 048
  3. APIXABAN [Suspect]
     Active Substance: APIXABAN
     Indication: Atrial fibrillation
     Dosage: 2.5 UNK
     Route: 048
  4. CLOPIDOGREL [Suspect]
     Active Substance: CLOPIDOGREL BISULFATE
  5. RBC F [Concomitant]
  6. NOREPINEPHRINE [Concomitant]
     Active Substance: NOREPINEPHRINE

REACTIONS (4)
  - Puncture site haemorrhage [None]
  - Haemoglobin decreased [None]
  - Hypotension [None]
  - Cardiac arrest [Fatal]
